FAERS Safety Report 5649636-0 (Version None)
Quarter: 2008Q1

REPORT INFORMATION
  Report Type: 
  Country: None (occurrence: None)
  Receive Date: 20080131
  Receipt Date: 20071124
  Transmission Date: 20080703
  Serious: No
  Sender: FDA-Public Use
  Company Number: US200711005737

PATIENT
  Age: 68 Year
  Sex: Female
  Weight: 92.5 kg

DRUGS (4)
  1. BYETTA [Suspect]
     Indication: TYPE 2 DIABETES MELLITUS
     Dosage: 5 UG, 2/D, SUBCUTANEOUS
     Route: 058
     Dates: start: 20071122
  2. LEVAQUIN [Concomitant]
  3. FORTAMET (METFORMIN HYDROCHLORIDE) [Concomitant]
  4. MILK OF MAGNESIA TAB [Concomitant]

REACTIONS (3)
  - DRY MOUTH [None]
  - NAUSEA [None]
  - STOMATITIS [None]
